FAERS Safety Report 7890186-9 (Version None)
Quarter: 2011Q4

REPORT INFORMATION
  Report Type: 
  Country: None (occurrence: None)
  Receive Date: 20111103
  Receipt Date: 20111026
  Transmission Date: 20120403
  Serious: Yes (Other)
  Sender: FDA-Public Use
  Company Number: MY-BAXTER-2011BH034796

PATIENT
  Age: 49 Year
  Sex: Female

DRUGS (17)
  1. ALEMTUZUMAB [Suspect]
     Indication: EXTRANODAL NK/T-CELL LYMPHOMA, NASAL TYPE
     Route: 058
  2. DEXAMETHASONE [Suspect]
     Indication: EXTRANODAL NK/T-CELL LYMPHOMA, NASAL TYPE
     Route: 065
  3. ACETAMINOPHEN [Concomitant]
     Indication: PROPHYLAXIS
     Route: 048
  4. CYTARABINE [Suspect]
     Indication: EXTRANODAL NK/T-CELL LYMPHOMA, NASAL TYPE
     Route: 037
  5. METHOTREXATE [Suspect]
     Route: 042
  6. FILGRASTIM [Concomitant]
     Indication: EXTRANODAL NK/T-CELL LYMPHOMA, NASAL TYPE
     Route: 058
  7. CYCLOPHOSPHAMIDE [Suspect]
     Indication: EXTRANODAL NK/T-CELL LYMPHOMA, NASAL TYPE
     Route: 042
  8. METHOTREXATE [Suspect]
     Route: 042
  9. DIPHENHYDRAMINE HCL [Concomitant]
     Indication: PROPHYLAXIS
     Route: 042
  10. MESNA [Concomitant]
     Indication: EXTRANODAL NK/T-CELL LYMPHOMA, NASAL TYPE
     Route: 042
  11. LEUCOVORIN CALCIUM [Concomitant]
     Indication: EXTRANODAL NK/T-CELL LYMPHOMA, NASAL TYPE
     Route: 042
  12. VINCRISTINE SULFATE [Suspect]
     Indication: EXTRANODAL NK/T-CELL LYMPHOMA, NASAL TYPE
     Route: 040
  13. CYTARABINE [Suspect]
     Route: 042
  14. LEUCOVORIN CALCIUM [Concomitant]
     Route: 042
  15. ACYCLOVIR [Concomitant]
     Indication: PROPHYLAXIS
     Route: 048
  16. METHOTREXATE [Suspect]
     Indication: EXTRANODAL NK/T-CELL LYMPHOMA, NASAL TYPE
     Route: 037
  17. DOXORUBICIN HCL [Suspect]
     Indication: EXTRANODAL NK/T-CELL LYMPHOMA, NASAL TYPE
     Route: 042

REACTIONS (2)
  - CYTOMEGALOVIRUS INFECTION [None]
  - NEUTROPENIA [None]
